FAERS Safety Report 7306303-5 (Version None)
Quarter: 2011Q1

REPORT INFORMATION
  Report Type: 
  Country: None (occurrence: None)
  Receive Date: 20110222
  Receipt Date: 20110216
  Transmission Date: 20110831
  Serious: Yes (Hospitalization)
  Sender: FDA-Public Use
  Company Number: PHHY2010RU90354

PATIENT
  Age: 21 Year
  Sex: Male

DRUGS (1)
  1. TOBI [Suspect]
     Indication: CYSTIC FIBROSIS
     Dosage: 300 MG, BID

REACTIONS (9)
  - COUGH [None]
  - PRODUCT TASTE ABNORMAL [None]
  - DRUG INEFFECTIVE [None]
  - LUNG INFECTION [None]
  - PNEUMONIA [None]
  - DYSPNOEA [None]
  - PYREXIA [None]
  - PRODUCT COLOUR ISSUE [None]
  - ASTHENIA [None]
